FAERS Safety Report 9547023 (Version 2)
Quarter: 2014Q1

REPORT INFORMATION
  Report Type: Spontaneous
  Country: US (occurrence: None)
  Receive Date: 20130606
  Receipt Date: 20130606
  Transmission Date: 20141002
  Serious: No
  Sender: FDA-Public Use
  Company Number: 2012PROUSA02436

PATIENT
  Age: 71 Year
  Sex: Male
  Weight: 81.6 kg

DRUGS (1)
  1. PROVENGE (SIPULEUCEL-T) SUSPENSION, 250ML [Suspect]
     Indication: PROSTATE CANCER METASTATIC
     Dosage: 250 ML, SINGLE, INTRAVENOUS
     Route: 042
     Dates: start: 20121220, end: 20121220

REACTIONS (2)
  - Loss of consciousness [None]
  - Hypotension [None]
